FAERS Safety Report 5204145-8 (Version None)
Quarter: 2007Q1

REPORT INFORMATION
  Report Type: 
  Country: None (occurrence: None)
  Receive Date: 20070110
  Receipt Date: 20051216
  Transmission Date: 20070707
  Serious: No
  Sender: FDA-Public Use
  Company Number: US-BRISTOL-MYERS SQUIBB COMPANY-13219340

PATIENT
  Age: 29 Year
  Sex: Female
  Weight: 73 kg

DRUGS (5)
  1. ABILIFY [Suspect]
     Dosage: STARTED ON ARIPIPRAZOLE ONE 5 MG TAB/D (1 WEEK), THEN 5 MG TABS 2/D, AND THEN 10 MG 1 PER EVENING.
     Route: 048
     Dates: start: 20051118
  2. PAXIL CR [Concomitant]
     Dates: start: 20051118
  3. LUNESTA [Concomitant]
     Dates: start: 20051118
  4. LISINOPRIL [Concomitant]
     Dates: start: 20051118, end: 20051215
  5. LITHIUM CARBONATE [Concomitant]
     Dates: start: 20051118

REACTIONS (7)
  - BLISTER [None]
  - DRY SKIN [None]
  - ERYTHEMA [None]
  - OEDEMA PERIPHERAL [None]
  - PAIN OF SKIN [None]
  - SKIN CHAPPED [None]
  - SKIN EXFOLIATION [None]
